FAERS Safety Report 22117009 (Version 5)
Quarter: 2023Q2

REPORT INFORMATION
  Report Type: Report from Study
  Country: BR (occurrence: BR)
  Receive Date: 20230320
  Receipt Date: 20230612
  Transmission Date: 20230722
  Serious: Yes (Hospitalization, Other)
  Sender: FDA-Public Use
  Company Number: BR-002147023-NVSC2023BR061333

PATIENT
  Age: 67 Year
  Sex: Female
  Weight: 74 kg

DRUGS (8)
  1. SECUKINUMAB [Suspect]
     Active Substance: SECUKINUMAB
     Indication: Psoriasis
     Dosage: UNK (2 AMPOULES (8 APPLICATIONS))
     Route: 065
  2. SECUKINUMAB [Suspect]
     Active Substance: SECUKINUMAB
     Dosage: UNK UNK, QMO (1 AMPOULES)
     Route: 065
  3. SECUKINUMAB [Suspect]
     Active Substance: SECUKINUMAB
     Dosage: UNK (STARTED 1 MONTH AND 1 WEEK AGO)
     Route: 065
  4. SECUKINUMAB [Suspect]
     Active Substance: SECUKINUMAB
     Dosage: UNK, (FORMULATION: AMPOULE, 2 PENS, START DATE: ONE MONTH AND ONE WEEK AGO), QW
     Route: 058
  5. SECUKINUMAB [Suspect]
     Active Substance: SECUKINUMAB
     Dosage: 300 MG, QMO (150 MG, PREFILLED SYRINGE)
     Route: 058
  6. ATENOLOL [Suspect]
     Active Substance: ATENOLOL
     Indication: Hypertension
     Dosage: 1 DOSAGE FORM, BID (STARTED MANY YEARS AGO)
     Route: 048
  7. LOSARTAN POTASSIUM [Concomitant]
     Active Substance: LOSARTAN POTASSIUM
     Indication: Hypertension
     Dosage: 1 DOSAGE FORM, (1 TABLET) BID, START DATE: MANY YEARS AGO (COULD NOT INFORM)
     Route: 048
  8. OMEPRAZOLE [Concomitant]
     Active Substance: OMEPRAZOLE
     Indication: Product used for unknown indication
     Dosage: 1 DOSAGE FORM, QD, START DATE: MANY YEARS AGO (COULD NOT INFORM)
     Route: 048

REACTIONS (14)
  - COVID-19 [Recovered/Resolved]
  - Urinary retention [Recovered/Resolved]
  - Psoriasis [Not Recovered/Not Resolved]
  - Anxiety [Recovering/Resolving]
  - Depression [Recovering/Resolving]
  - Weight decreased [Not Recovered/Not Resolved]
  - Diabetes mellitus [Not Recovered/Not Resolved]
  - Skin lesion [Not Recovered/Not Resolved]
  - Discomfort [Recovering/Resolving]
  - Nervousness [Recovering/Resolving]
  - Visual impairment [Recovering/Resolving]
  - Stress [Recovering/Resolving]
  - Product prescribing error [Recovered/Resolved]
  - Incorrect dose administered [Unknown]

NARRATIVE: CASE EVENT DATE: 20210701
